FAERS Safety Report 4851774-7 (Version None)
Quarter: 2005Q4

REPORT INFORMATION
  Report Type: 
  Country: None (occurrence: None)
  Receive Date: 20051209
  Receipt Date: 20051128
  Transmission Date: 20060501
  Serious: Yes (Other)
  Sender: FDA-Public Use
  Company Number: S05-GER-05625-01

PATIENT
  Age: 69 Year
  Sex: Female

DRUGS (2)
  1. ESCITALOPRAM OXALATE [Suspect]
     Indication: DEPRESSION
     Dosage: 5 MG QD PO
     Route: 048
     Dates: start: 20051019, end: 20051102
  2. METOCLOPRAMIDE [Concomitant]

REACTIONS (5)
  - APHASIA [None]
  - COGNITIVE DISORDER [None]
  - GRAND MAL CONVULSION [None]
  - HEMIPARESIS [None]
  - MUSCLE SPASTICITY [None]
